FAERS Safety Report 11288364 (Version 2)
Quarter: 2015Q3

REPORT INFORMATION
  Report Type: Spontaneous
  Country: US (occurrence: US)
  Receive Date: 20150721
  Receipt Date: 20150721
  Transmission Date: 20151125
  Serious: No
  Sender: FDA-Public Use
  Company Number: US-UNITED THERAPEUTICS-UNT-2014-011472

PATIENT
  Age: 71 Year
  Sex: Female
  Weight: 90.7 kg

DRUGS (1)
  1. REMODULIN [Suspect]
     Active Substance: TREPROSTINIL
     Indication: PULMONARY ARTERIAL HYPERTENSION
     Dosage: 0.041 ?G/KG/MIN, CONTINUING
     Route: 041
     Dates: start: 201309

REACTIONS (3)
  - Drug dose omission [Unknown]
  - Pain [Unknown]
  - Device leakage [Unknown]

NARRATIVE: CASE EVENT DATE: 20141121
